FAERS Safety Report 4429748-X (Version None)
Quarter: 2004Q3

REPORT INFORMATION
  Report Type: 
  Country: None (occurrence: None)
  Receive Date: 20040816
  Receipt Date: 20040810
  Transmission Date: 20050211
  Serious: Yes (Death)
  Sender: FDA-Public Use
  Company Number: GBWYE532523JAN04

PATIENT
  Age: 33 Year
  Sex: Female

DRUGS (4)
  1. EFFEXOR XR [Suspect]
  2. DIAZEPAM [Concomitant]
  3. CHLORDIAZEPOXIDE [Concomitant]
  4. ALCOHOL (ETHANOL) [Concomitant]

REACTIONS (2)
  - CARDIAC ARREST [None]
  - OVERDOSE [None]
